FAERS Safety Report 19818476 (Version 1)
Quarter: 2021Q3

REPORT INFORMATION
  Report Type: Report from Study
  Country: MX (occurrence: MX)
  Receive Date: 20210911
  Receipt Date: 20210911
  Transmission Date: 20211014
  Serious: Yes (Death)
  Sender: FDA-Public Use
  Company Number: NVSC2021MX205584

PATIENT
  Age: 68 Year
  Sex: Male
  Weight: 59 kg

DRUGS (1)
  1. REVOLADE [Suspect]
     Active Substance: ELTROMBOPAG OLAMINE
     Indication: MYELODYSPLASTIC SYNDROME
     Dosage: 25 MG, TID ((1DF))
     Route: 048
     Dates: start: 202106

REACTIONS (3)
  - Product use in unapproved indication [Unknown]
  - Death [Fatal]
  - Inappropriate schedule of product administration [Unknown]

NARRATIVE: CASE EVENT DATE: 20210713
